FAERS Safety Report 19979234 (Version 4)
Quarter: 2022Q1

REPORT INFORMATION
  Report Type: Report from Study
  Country: DE (occurrence: DE)
  Receive Date: 20211020
  Receipt Date: 20220325
  Transmission Date: 20220423
  Serious: Yes (Hospitalization)
  Sender: FDA-Public Use
  Company Number: DE-EXELIXIS-XL18421043532

PATIENT

DRUGS (10)
  1. CABOZANTINIB [Suspect]
     Active Substance: CABOZANTINIB
     Indication: Renal cell carcinoma
     Dosage: 40 MG
     Dates: start: 20210707
  2. NIVOLUMAB [Suspect]
     Active Substance: NIVOLUMAB
     Indication: Renal cell carcinoma
     Dosage: 240 MG
     Dates: start: 20210705
  3. Tantum-Verde-Spray [Concomitant]
  4. METAMIZOLE [Concomitant]
     Active Substance: METAMIZOLE
  5. AMPHO-MORONAL [Concomitant]
     Active Substance: AMPHOTERICIN B
  6. RECESSAN [Concomitant]
  7. ELACUTAN [Concomitant]
  8. NYSTATIN [Concomitant]
     Active Substance: NYSTATIN
  9. LEVOTHYROXINE SODIUM [Concomitant]
     Active Substance: LEVOTHYROXINE SODIUM
     Dosage: UNK
  10. MAGNESIUM [Concomitant]
     Active Substance: MAGNESIUM
     Dosage: UNK

REACTIONS (9)
  - Cholecystitis acute [Recovered/Resolved]
  - Malaise [Recovered/Resolved]
  - Immune-mediated thyroiditis [Unknown]
  - Muscle spasms [Recovered/Resolved]
  - Abnormal loss of weight [Unknown]
  - Diarrhoea [Unknown]
  - Hypertension [Unknown]
  - Stomatitis [Unknown]
  - Palmar-plantar erythrodysaesthesia syndrome [Unknown]

NARRATIVE: CASE EVENT DATE: 20210731
